FAERS Safety Report 15935720 (Version 2)
Quarter: 2019Q1

REPORT INFORMATION
  Report Type: Report from Study
  Country: None (occurrence: NL)
  Receive Date: 20190208
  Receipt Date: 20190214
  Transmission Date: 20190417
  Serious: Yes (Death)
  Sender: FDA-Public Use
  Company Number: NL-ABBVIE-19S-114-2655963-00

PATIENT
  Age: 75 Year
  Sex: Male

DRUGS (1)
  1. DUODOPA [Suspect]
     Active Substance: CARBIDOPA\LEVODOPA
     Indication: PARKINSON^S DISEASE
     Route: 050
     Dates: start: 20170110

REACTIONS (4)
  - Joint dislocation [Unknown]
  - Death [Fatal]
  - Fall [Unknown]
  - Bruxism [Unknown]

NARRATIVE: CASE EVENT DATE: 20190203
